FAERS Safety Report 4451576-X (Version None)
Quarter: 2004Q3

REPORT INFORMATION
  Report Type: 
  Country: None (occurrence: None)
  Receive Date: 20040915
  Receipt Date: 20040907
  Transmission Date: 20050211
  Serious: Yes (Other)
  Sender: FDA-Public Use
  Company Number: HQWYE947209SEP04

PATIENT
  Age: 18 Year
  Sex: Male
  Weight: 66.74 kg

DRUGS (2)
  1. ALAVERT [Suspect]
     Indication: LACRIMATION INCREASED
     Dosage: 1 TABLET 1X PER 1 DAY, ORAL
     Route: 048
     Dates: start: 20040904, end: 20040904
  2. ALAVERT [Suspect]
     Indication: RHINORRHOEA
     Dosage: 1 TABLET 1X PER 1 DAY, ORAL
     Route: 048
     Dates: start: 20040904, end: 20040904

REACTIONS (1)
  - SUPRAVENTRICULAR TACHYCARDIA [None]
